FAERS Safety Report 18683781 (Version 1)
Quarter: 2020Q4

REPORT INFORMATION
  Report Type: Spontaneous
  Country: RU (occurrence: RU)
  Receive Date: 20201230
  Receipt Date: 20201230
  Transmission Date: 20210114
  Serious: Yes (Other)
  Sender: FDA-Public Use
  Company Number: RU-ROCHE-2736841

PATIENT

DRUGS (1)
  1. EMICIZUMAB. [Suspect]
     Active Substance: EMICIZUMAB
     Indication: FACTOR VIII DEFICIENCY
     Route: 065

REACTIONS (5)
  - Haemarthrosis [Unknown]
  - Haematuria [Recovered/Resolved]
  - Tracheitis [Unknown]
  - Haemorrhoids [Unknown]
  - Coronavirus infection [Unknown]
